FAERS Safety Report 10222216 (Version 2)
Quarter: 2014Q2

REPORT INFORMATION
  Report Type: Report from Study
  Country: CO (occurrence: CO)
  Receive Date: 20140606
  Receipt Date: 20140606
  Transmission Date: 20141212
  Serious: Yes (Death, Hospitalization)
  Sender: FDA-Public Use
  Company Number: CO-SA-2014SA046223

PATIENT
  Age: 86 Year
  Sex: Male

DRUGS (2)
  1. LANTUS [Suspect]
     Indication: DIABETES MELLITUS
     Dosage: DOSE:30 UNIT(S)
     Route: 058
     Dates: start: 201403, end: 20140415
  2. APIDRA [Suspect]
     Indication: DIABETES MELLITUS
     Dosage: DOSE:10 UNIT(S)
     Route: 058
     Dates: start: 201403, end: 20140415

REACTIONS (4)
  - Cardio-respiratory arrest [Fatal]
  - Hypoglycaemia [Fatal]
  - Diabetic coma [Fatal]
  - Hypoglycaemia [Recovered/Resolved]
